FAERS Safety Report 6166124-6 (Version None)
Quarter: 2009Q2

REPORT INFORMATION
  Report Type: 
  Country: None (occurrence: None)
  Receive Date: 20090422
  Receipt Date: 20090422
  Transmission Date: 20091009
  Serious: No
  Sender: FDA-Public Use
  Company Number: None

PATIENT
  Age: 68 Year
  Sex: Male
  Weight: 72.5755 kg

DRUGS (12)
  1. NIASPAN [Suspect]
     Indication: HIGH DENSITY LIPOPROTEIN DECREASED
     Dosage: 500 MG Q HS PO EVERY NIGHT FOR 1 YEAR
     Route: 048
  2. VYTORIN [Concomitant]
  3. ENALAPRIL [Concomitant]
  4. GLUCOSAMINE-CHONDROITIN [Concomitant]
  5. COLCHICINE [Concomitant]
  6. DIGOXIN [Concomitant]
  7. PLAVIX [Concomitant]
  8. ASPIRIN [Concomitant]
  9. PREVACID [Concomitant]
  10. FLOTX [Concomitant]
  11. METOPROLOL TARTRATE [Concomitant]
  12. ENALAPRIL MALEATE [Concomitant]

REACTIONS (2)
  - DRUG DOSE OMISSION [None]
  - DYSPNOEA [None]
